FAERS Safety Report 8374730-3 (Version None)
Quarter: 2012Q2

REPORT INFORMATION
  Report Type: 
  Country: None (occurrence: None)
  Receive Date: 20120521
  Receipt Date: 20120514
  Transmission Date: 20120825
  Serious: Yes (Hospitalization, Other)
  Sender: FDA-Public Use
  Company Number: US-ACTELION-A-US2010-38103

PATIENT

DRUGS (1)
  1. TRACLEER [Suspect]
     Indication: PULMONARY ARTERIAL HYPERTENSION
     Dosage: UNK
     Route: 048
     Dates: start: 20090123

REACTIONS (14)
  - BRAIN MASS [None]
  - HEADACHE [None]
  - FLUID RETENTION [None]
  - PROCEDURAL COMPLICATION [None]
  - EAR PAIN [None]
  - VOMITING [None]
  - BACK PAIN [None]
  - KNEE ARTHROPLASTY [None]
  - CARDIAC FAILURE [None]
  - PAIN [None]
  - CONDITION AGGRAVATED [None]
  - DYSPNOEA [None]
  - VISION BLURRED [None]
  - GASTRIC BYPASS [None]
